FAERS Safety Report 12109832 (Version 1)
Quarter: 2016Q1

REPORT INFORMATION
  Report Type: Spontaneous
  Country: US (occurrence: None)
  Receive Date: 20160223
  Receipt Date: 20160223
  Transmission Date: 20160526
  Serious: No
  Sender: FDA-Public Use
  Company Number: None

PATIENT
  Age: 30 Year
  Sex: Female
  Weight: 67.59 kg

DRUGS (1)
  1. MIRTAZAPINE 30 MG REMERON [Suspect]
     Active Substance: MIRTAZAPINE
     Indication: DEPRESSION
     Dosage: 1 PILL AT BEDTIME TAKEN BY MOUTH
     Route: 048
     Dates: start: 20160202, end: 20160209

REACTIONS (2)
  - Abdominal pain upper [None]
  - Cyst [None]

NARRATIVE: CASE EVENT DATE: 20160221
